FAERS Safety Report 6420304-0 (Version None)
Quarter: 2009Q4

REPORT INFORMATION
  Report Type: 
  Country: None (occurrence: None)
  Receive Date: 20091029
  Receipt Date: 20091019
  Transmission Date: 20100525
  Serious: Yes (Other)
  Sender: FDA-Public Use
  Company Number: BR-ABBOTT-09P-020-0600243-00

PATIENT
  Sex: Female
  Weight: 82 kg

DRUGS (7)
  1. HUMIRA [Suspect]
     Indication: RHEUMATOID ARTHRITIS
     Route: 058
  2. METFORMIN HCL [Concomitant]
     Indication: PANCREATIC DISORDER
     Route: 048
     Dates: start: 20090701
  3. AMILORIDE HCL/HYDROCHLOORTHIAZIDE [Concomitant]
     Indication: HYPERTENSION
     Route: 048
     Dates: start: 20030101
  4. PROPRANOLOL [Concomitant]
     Indication: CARDIOVASCULAR DISORDER
     Route: 048
     Dates: start: 20040101
  5. DOMPERIDONE 10MG, DEFLAZACORT 7MG, FAMOTIDINE 40MG (MAGISTRAL FORMULA) [Concomitant]
     Indication: ARTHRALGIA
     Route: 048
     Dates: start: 20070101
  6. PANTOPRAZOLE [Concomitant]
     Indication: GASTRIC DISORDER
     Route: 048
     Dates: start: 20080101
  7. PURAN T4 [Concomitant]
     Indication: THYROID DISORDER
     Route: 048
     Dates: start: 20040101

REACTIONS (7)
  - INJECTION SITE ERYTHEMA [None]
  - INJECTION SITE PRURITUS [None]
  - JAW CYST [None]
  - JAW FRACTURE [None]
  - TOOTH DEPOSIT [None]
  - TOOTH EXTRACTION [None]
  - WISDOM TEETH REMOVAL [None]
